FAERS Safety Report 5286748-8 (Version None)
Quarter: 2007Q1

REPORT INFORMATION
  Report Type: 
  Country: None (occurrence: None)
  Receive Date: 20070329
  Receipt Date: 20070316
  Transmission Date: 20070707
  Serious: Yes (Life-Threatening, Hospitalization, Other)
  Sender: FDA-Public Use
  Company Number: 109960ISR

PATIENT
  Age: 64 Year
  Sex: Female

DRUGS (6)
  1. SOTALOL HYDROCHLORIDE [Suspect]
     Indication: ATRIAL FIBRILLATION
  2. DIGOXIN [Suspect]
     Indication: ATRIAL FIBRILLATION
  3. VERAPAMIL HYDROCHLORIDE [Suspect]
     Dosage: 240 MG (80 MG, 3 IN 1 D) ORAL
     Route: 048
  4. WARFARIN SODIUM [Concomitant]
  5. FRUMIL [Concomitant]
  6. PERINDOPRIL ERBUMINE [Concomitant]

REACTIONS (24)
  - ABDOMINAL PAIN [None]
  - ABDOMINAL TENDERNESS [None]
  - AORTIC DISSECTION [None]
  - ATRIAL FIBRILLATION [None]
  - BOWEL SOUNDS ABNORMAL [None]
  - BRADYCARDIA [None]
  - CARDIOACTIVE DRUG LEVEL DECREASED [None]
  - CARDIOMEGALY [None]
  - COUGH [None]
  - DEPRESSED LEVEL OF CONSCIOUSNESS [None]
  - DRUG INTERACTION [None]
  - DRUG TOXICITY [None]
  - HAEMODIALYSIS [None]
  - HEPATIC ENZYME INCREASED [None]
  - HYPOTENSION [None]
  - IATROGENIC INJURY [None]
  - INTERNATIONAL NORMALISED RATIO INCREASED [None]
  - LIVEDO RETICULARIS [None]
  - LIVER FUNCTION TEST ABNORMAL [None]
  - METABOLIC ACIDOSIS [None]
  - NO THERAPEUTIC RESPONSE [None]
  - PULSE ABSENT [None]
  - RENAL FAILURE [None]
  - SHOCK [None]
